FAERS Safety Report 9585795 (Version 2)
Quarter: 2013Q4

REPORT INFORMATION
  Report Type: Spontaneous
  Country: DE (occurrence: DE)
  Receive Date: 20131003
  Receipt Date: 20131119
  Transmission Date: 20140711
  Serious: Yes (Hospitalization, Other)
  Sender: FDA-Public Use
  Company Number: DE-AMGEN-DEUSP2013069474

PATIENT
  Age: 63 Year
  Sex: Male
  Weight: 100 kg

DRUGS (9)
  1. ENBREL [Suspect]
     Indication: PSORIASIS
     Dosage: 25 MG, 2X/WEEK
     Route: 058
     Dates: start: 20130115, end: 20130813
  2. ENBREL [Suspect]
     Indication: PSORIATIC ARTHROPATHY
     Dosage: UNK MG
     Route: 065
  3. REMICADE [Concomitant]
     Indication: PSORIASIS
     Dosage: 400 MG, SINGLE
     Route: 042
     Dates: start: 20130104, end: 20130104
  4. REMICADE [Concomitant]
     Indication: PSORIATIC ARTHROPATHY
  5. TERBINAFINE [Concomitant]
     Indication: ONYCHOMYCOSIS
     Dosage: 250 MG, WEEKLY
     Route: 048
  6. ASS [Concomitant]
     Dosage: 100 MG, UNK
  7. RAMIPRIL [Concomitant]
     Dosage: 5 MG, UNK
  8. BISOPROLOL [Concomitant]
     Dosage: 1.25 MG, UNK
  9. TORASEMIDE [Concomitant]
     Dosage: 10 MG, UNK

REACTIONS (11)
  - Arterial stenosis [Unknown]
  - Ejection fraction decreased [Recovering/Resolving]
  - Coronary artery disease [Unknown]
  - Arteriosclerosis coronary artery [Unknown]
  - Blood uric acid increased [Unknown]
  - Blood cholesterol increased [Unknown]
  - Blood lactate dehydrogenase increased [Unknown]
  - Brain natriuretic peptide increased [Unknown]
  - Blood creatinine increased [Unknown]
  - C-reactive protein increased [Unknown]
  - Congestive cardiomyopathy [Not Recovered/Not Resolved]
